FAERS Safety Report 17547461 (Version 2)
Quarter: 2020Q3

REPORT INFORMATION
  Report Type: Other
  Country: US (occurrence: US)
  Receive Date: 20200317
  Receipt Date: 20200918
  Transmission Date: 20201102
  Serious: Yes (Death)
  Sender: FDA-Public Use
  Company Number: US-ROCHE-2546164

PATIENT
  Age: 73 Year
  Sex: Male

DRUGS (1)
  1. TECENTRIQ [Suspect]
     Active Substance: ATEZOLIZUMAB
     Indication: LUNG NEOPLASM MALIGNANT
     Dosage: FOR THREE WEEKS
     Route: 065

REACTIONS (2)
  - Death [Fatal]
  - Ulcer [Unknown]

NARRATIVE: CASE EVENT DATE: 20200205
